FAERS Safety Report 5765863-6 (Version None)
Quarter: 2008Q2

REPORT INFORMATION
  Report Type: 
  Country: None (occurrence: None)
  Receive Date: 20080605
  Receipt Date: 20080521
  Transmission Date: 20081010
  Serious: Yes (Other)
  Sender: FDA-Public Use
  Company Number: DSA_31935_2008

PATIENT
  Sex: Male

DRUGS (1)
  1. CARDIZEM CD [Suspect]
     Indication: DRUG USE FOR UNKNOWN INDICATION
     Dosage: 180 MG QD, ORAL
     Route: 048
     Dates: start: 20071201

REACTIONS (2)
  - ASTHMA [None]
  - NO THERAPEUTIC RESPONSE [None]
